FAERS Safety Report 4731748-7 (Version None)
Quarter: 2005Q3

REPORT INFORMATION
  Report Type: 
  Country: None (occurrence: None)
  Receive Date: 20050725
  Receipt Date: 20040913
  Transmission Date: 20060218
  Serious: Yes (Disabling)
  Sender: FDA-Public Use
  Company Number: WAES 0306USA00687

PATIENT
  Age: 63 Year
  Sex: Male
  Weight: 129.2752 kg

DRUGS (12)
  1. VIOXX [Suspect]
     Indication: ARTHRALGIA
     Dosage: 50 MG/DAILY/PO
     Route: 048
     Dates: start: 20000531, end: 20000713
  2. AGGRENOX [Concomitant]
  3. CARDURA [Concomitant]
  4. IMDUR [Concomitant]
  5. LIPITOR [Concomitant]
  6. LOPRESSOR [Concomitant]
  7. NITROSTAT [Concomitant]
  8. PRILOSEC [Concomitant]
  9. PRINZIDE [Concomitant]
  10. ALLOPURINOL [Concomitant]
  11. HYDROCHLOROTHIAZIDE (+) TRIAMTER [Concomitant]
  12. ISOSORBIDE MONONITRATE [Concomitant]

REACTIONS (10)
  - ADVERSE EVENT [None]
  - ARTHRALGIA [None]
  - AZOTAEMIA [None]
  - BACK PAIN [None]
  - BENIGN PROSTATIC HYPERPLASIA [None]
  - BLOOD UREA INCREASED [None]
  - BUNDLE BRANCH BLOCK RIGHT [None]
  - BURSITIS [None]
  - COLONIC POLYP [None]
  - SKIN PAPILLOMA [None]
